FAERS Safety Report 9369044 (Version 1)
Quarter: 2013Q2

REPORT INFORMATION
  Report Type: Report from Study
  Country: FR (occurrence: FR)
  Receive Date: 20130626
  Receipt Date: 20130626
  Transmission Date: 20140414
  Serious: Yes (Hospitalization, Other)
  Sender: FDA-Public Use
  Company Number: FR-BIOGENIDEC-2012BI050999

PATIENT
  Age: 41 Year
  Sex: Female
  Weight: 66 kg

DRUGS (3)
  1. BG00012 [Suspect]
     Indication: MULTIPLE SCLEROSIS
     Route: 048
     Dates: start: 20100901, end: 20121114
  2. EFFEXOR [Concomitant]
     Indication: DEPRESSION
     Route: 048
     Dates: start: 20080201
  3. CYCLEN [Concomitant]
     Indication: CONTRACEPTION
     Route: 048
     Dates: start: 2008

REACTIONS (1)
  - Breast cancer [Recovered/Resolved with Sequelae]
